FAERS Safety Report 6400838-5 (Version None)
Quarter: 2009Q4

REPORT INFORMATION
  Report Type: 
  Country: None (occurrence: None)
  Receive Date: 20091014
  Receipt Date: 20091007
  Transmission Date: 20100525
  Serious: Yes (Other)
  Sender: FDA-Public Use
  Company Number: CO-GENENTECH-292181

PATIENT
  Age: 66 Year
  Sex: Female

DRUGS (5)
  1. HERCEPTIN [Suspect]
     Indication: BREAST CANCER
     Dosage: 140 MG, UNK
     Route: 042
     Dates: start: 20091005
  2. LOSARTAN POSTASSIUM [Concomitant]
     Indication: DRUG USE FOR UNKNOWN INDICATION
     Dosage: UNK
  3. GLIBENCLAMIDE [Concomitant]
     Indication: DRUG USE FOR UNKNOWN INDICATION
     Dosage: UNK
  4. ASPIRIN [Concomitant]
     Indication: DRUG USE FOR UNKNOWN INDICATION
     Dosage: UNK
  5. PREDNISOLONE [Concomitant]
     Indication: DRUG USE FOR UNKNOWN INDICATION
     Dosage: UNK

REACTIONS (3)
  - ASTHENIA [None]
  - URINARY RETENTION [None]
  - VOMITING [None]
